FAERS Safety Report 8526327-X (Version None)
Quarter: 2012Q3

REPORT INFORMATION
  Report Type: 
  Country: None (occurrence: None)
  Receive Date: 20120721
  Receipt Date: 20120523
  Transmission Date: 20120928
  Serious: No
  Sender: FDA-Public Use
  Company Number: SE-009507513-1207USA007407

PATIENT

DRUGS (1)
  1. DR. SCHOLL'S TRI-COMFORT INSOLES [Suspect]
     Indication: PAIN IN EXTREMITY

REACTIONS (1)
  - THERAPEUTIC PRODUCT INEFFECTIVE [None]
